FAERS Safety Report 9184958 (Version 1)
Quarter: 2013Q1

REPORT INFORMATION
  Report Type: Spontaneous
  Country: US (occurrence: US)
  Receive Date: 20130325
  Receipt Date: 20130325
  Transmission Date: 20140127
  Serious: No
  Sender: FDA-Public Use
  Company Number: US-BRISTOL-MYERS SQUIBB COMPANY-16547333

PATIENT
  Age: 62 Year
  Sex: Male
  Weight: 88.43 kg

DRUGS (1)
  1. ERBITUX [Suspect]
     Indication: SALIVARY GLAND NEOPLASM
     Dates: start: 20120412

REACTIONS (5)
  - Headache [Unknown]
  - Dry mouth [Unknown]
  - Rash [Unknown]
  - Fatigue [Unknown]
  - Hypophagia [Unknown]
